FAERS Safety Report 5929837-4 (Version None)
Quarter: 2008Q4

REPORT INFORMATION
  Report Type: 
  Country: None (occurrence: None)
  Receive Date: 20081022
  Receipt Date: 20081014
  Transmission Date: 20090506
  Serious: Yes (Other)
  Sender: FDA-Public Use
  Company Number: 2008SP020811

PATIENT
  Age: 19 Year
  Sex: Female

DRUGS (2)
  1. RIBAVIRIN [Suspect]
     Indication: HEPATITIS C
     Dosage: 1400 MCG; QW; SC
     Route: 058
     Dates: start: 20071105, end: 20080504
  2. PEGASYS [Suspect]
     Indication: HEPATITIS C
     Dosage: 180 MCG; QW; SC
     Route: 058
     Dates: start: 20071105, end: 20080428

REACTIONS (3)
  - ABORTION SPONTANEOUS [None]
  - DRUG EXPOSURE DURING PREGNANCY [None]
  - PREGNANCY [None]
